FAERS Safety Report 16898757 (Version 1)
Quarter: 2019Q4

REPORT INFORMATION
  Report Type: Spontaneous
  Country: US (occurrence: US)
  Receive Date: 20191008
  Receipt Date: 20191008
  Transmission Date: 20200122
  Serious: Yes (Other)
  Sender: FDA-Public Use
  Company Number: None

PATIENT
  Age: 4 Year
  Sex: Female
  Weight: 16.2 kg

DRUGS (3)
  1. PEG3350 [Suspect]
     Active Substance: POLYETHYLENE GLYCOL 3350
     Indication: CONSTIPATION
     Dosage: ?          QUANTITY:8 GRAM;?
     Route: 048
     Dates: start: 20190121, end: 20190926
  2. PROBIOTIC [Concomitant]
     Active Substance: PROBIOTICS NOS
  3. VITAMIN [Concomitant]
     Active Substance: VITAMINS

REACTIONS (2)
  - Mental disorder [None]
  - Anger [None]

NARRATIVE: CASE EVENT DATE: 20190918
